FAERS Safety Report 11687605 (Version 1)
Quarter: 2015Q4

REPORT INFORMATION
  Report Type: Spontaneous
  Country: FI (occurrence: FI)
  Receive Date: 20151030
  Receipt Date: 20151030
  Transmission Date: 20160304
  Serious: Yes (Other)
  Sender: FDA-Public Use
  Company Number: FI-ROXANE LABORATORIES, INC.-2015-RO-01764RO

PATIENT
  Sex: Male

DRUGS (1)
  1. CYCLOPHOSPHAMIDE. [Suspect]
     Active Substance: CYCLOPHOSPHAMIDE
     Indication: RENAL TRANSPLANT
     Route: 065

REACTIONS (3)
  - Blood luteinising hormone increased [Unknown]
  - Blood testosterone decreased [Unknown]
  - Testicular atrophy [Unknown]
